FAERS Safety Report 6418863-7 (Version None)
Quarter: 2009Q4

REPORT INFORMATION
  Report Type: 
  Country: None (occurrence: None)
  Receive Date: 20091029
  Receipt Date: 20091022
  Transmission Date: 20100525
  Serious: Yes (Death, Hospitalization)
  Sender: FDA-Public Use
  Company Number: US-BIOGENIDEC-2009BI032389

PATIENT
  Age: 60 Year
  Sex: Female

DRUGS (3)
  1. AVONEX [Suspect]
     Indication: MULTIPLE SCLEROSIS
     Route: 030
     Dates: start: 20090901
  2. AVONEX [Suspect]
     Route: 030
     Dates: start: 20030401, end: 20030501
  3. AVONEX [Suspect]
     Route: 030
     Dates: start: 20030801

REACTIONS (2)
  - ABDOMINAL PAIN UPPER [None]
  - HEPATIC FAILURE [None]
